FAERS Safety Report 4669569-6 (Version None)
Quarter: 2005Q2

REPORT INFORMATION
  Report Type: 
  Country: None (occurrence: None)
  Receive Date: 20050523
  Receipt Date: 20050307
  Transmission Date: 20051028
  Serious: Yes (Other)
  Sender: FDA-Public Use
  Company Number: PHEH2005US02920

PATIENT
  Sex: 0

DRUGS (1)
  1. DIOVAN [Suspect]
     Dosage: UNK/UNK
     Route: 048

REACTIONS (2)
  - BLOOD POTASSIUM INCREASED [None]
  - RENAL DISORDER [None]
